FAERS Safety Report 8152343-6 (Version None)
Quarter: 2012Q1

REPORT INFORMATION
  Report Type: 
  Country: None (occurrence: None)
  Receive Date: 20120221
  Receipt Date: 20120119
  Transmission Date: 20120608
  Serious: No
  Sender: FDA-Public Use
  Company Number: CA-JNJFOC-20120206886

PATIENT
  Sex: Female
  Weight: 80 kg

DRUGS (5)
  1. FLUCONAZOLE [Concomitant]
     Route: 065
  2. AZATHIOPRINE [Concomitant]
     Route: 048
  3. REMICADE [Suspect]
     Indication: CROHN'S DISEASE
     Route: 042
     Dates: start: 20110601
  4. ENTOCORT EC [Concomitant]
     Route: 065
  5. PRILOSEC [Concomitant]
     Route: 065

REACTIONS (1)
  - FUNGAL INFECTION [None]
